FAERS Safety Report 18372822 (Version 15)
Quarter: 2023Q4

REPORT INFORMATION
  Report Type: Spontaneous
  Country: US (occurrence: US)
  Receive Date: 20201012
  Receipt Date: 20231110
  Transmission Date: 20240110
  Serious: Yes (Other)
  Sender: FDA-Public Use
  Company Number: US-PFIZER INC-2020387665

PATIENT
  Age: 86 Year
  Sex: Female
  Weight: 72.57 kg

DRUGS (3)
  1. IBRANCE [Suspect]
     Active Substance: PALBOCICLIB
     Indication: Breast cancer metastatic
     Dosage: 125 MG, CYCLIC [125MG ONCE A DAY BY MOUTH FOR 21 DAYS THEN 7 DAYS OFF]
     Route: 048
  2. IBRANCE [Suspect]
     Active Substance: PALBOCICLIB
     Dosage: 125 MG, CYCLIC [125MG ONCE A DAY BY MOUTH FOR 21 DAYS THEN 7 DAYS OFF]
  3. LETROZOLE [Concomitant]
     Active Substance: LETROZOLE
     Indication: Breast cancer metastatic
     Dosage: 2.5 MG, 1X/DAY
     Route: 048

REACTIONS (10)
  - Dementia [Unknown]
  - Neoplasm recurrence [Unknown]
  - Memory impairment [Unknown]
  - Arthritis [Unknown]
  - Fatigue [Unknown]
  - Asthenia [Unknown]
  - Mental disorder [Unknown]
  - Tumour marker increased [Unknown]
  - Lung opacity [Unknown]
  - Vertigo [Unknown]
